FAERS Safety Report 21339155 (Version 1)
Quarter: 2022Q3

REPORT INFORMATION
  Report Type: Spontaneous
  Country: JP (occurrence: JP)
  Receive Date: 20220915
  Receipt Date: 20220915
  Transmission Date: 20221027
  Serious: No
  Sender: FDA-Public Use
  Company Number: JP-MSD-M2022-38337

PATIENT
  Age: 54 Year
  Sex: Male

DRUGS (8)
  1. LAGEVRIO [Suspect]
     Active Substance: MOLNUPIRAVIR
     Indication: COVID-19 treatment
     Dosage: 800 MILLIGRAM, TID
     Route: 048
     Dates: start: 20220828, end: 20220828
  2. LAGEVRIO [Suspect]
     Active Substance: MOLNUPIRAVIR
     Dosage: 800 MILLIGRAM, BID
     Route: 048
     Dates: start: 20220829, end: 20220901
  3. DIGOXIN [Concomitant]
     Active Substance: DIGOXIN
     Indication: Cardiovascular event prophylaxis
     Dosage: 0.5 MILLIGRAM, QD
     Route: 048
  4. VONOPRAZAN FUMARATE [Concomitant]
     Active Substance: VONOPRAZAN FUMARATE
     Indication: Gastric ulcer
     Dosage: 1 MILLIGRAM, QD
     Route: 048
  5. AMLODIPINE BESYLATE\CANDESARTAN CILEXETIL [Concomitant]
     Active Substance: AMLODIPINE BESYLATE\CANDESARTAN CILEXETIL
     Indication: Hypertension
     Dosage: 1 DOSAGE FORM, QD
     Route: 048
  6. TAMSULOSIN HYDROCHLORIDE [Concomitant]
     Active Substance: TAMSULOSIN HYDROCHLORIDE
     Indication: Benign prostatic hyperplasia
     Dosage: 0.2 MILLIGRAM, QD
     Route: 048
  7. MIRABEGRON [Concomitant]
     Active Substance: MIRABEGRON
     Indication: Pollakiuria
     Dosage: 50 MILLIGRAM, QD
     Route: 048
  8. ASENAPINE MALEATE [Concomitant]
     Active Substance: ASENAPINE MALEATE
     Indication: Schizophrenia
     Dosage: 10 MILLIGRAM, BID
     Route: 048

REACTIONS (2)
  - Overdose [Recovered/Resolved]
  - No adverse event [Unknown]

NARRATIVE: CASE EVENT DATE: 20220828
